FAERS Safety Report 18844329 (Version 1)
Quarter: 2021Q1

REPORT INFORMATION
  Report Type: Report from Study
  Country: US (occurrence: US)
  Receive Date: 20210203
  Receipt Date: 20210203
  Transmission Date: 20210419
  Serious: No
  Sender: FDA-Public Use
  Company Number: US-EXELIXIS-CABO-20026714

PATIENT
  Sex: Male

DRUGS (3)
  1. CABOMETYX [Suspect]
     Active Substance: CABOZANTINIB S-MALATE
     Indication: RENAL CELL CARCINOMA
     Dosage: 40 MG, QD
     Dates: start: 20191214
  2. CABOMETYX [Suspect]
     Active Substance: CABOZANTINIB S-MALATE
     Dosage: 20 MG, QD
     Dates: start: 20200207
  3. CABOMETYX [Suspect]
     Active Substance: CABOZANTINIB S-MALATE
     Dosage: 40 MG, QOD
     Dates: start: 20200129

REACTIONS (13)
  - Acne [Recovered/Resolved]
  - Libido decreased [Unknown]
  - Constipation [Unknown]
  - Furuncle [Not Recovered/Not Resolved]
  - Decreased appetite [Unknown]
  - Arthralgia [Unknown]
  - Gastrooesophageal reflux disease [Unknown]
  - Agitation [Unknown]
  - Ejaculation failure [Unknown]
  - Pain [Unknown]
  - Fatigue [Unknown]
  - Myalgia [Unknown]
  - Abdominal distension [Unknown]
